FAERS Safety Report 8837804 (Version 1)
Quarter: 2012Q4

REPORT INFORMATION
  Report Type: 
  Country: US (occurrence: US)
  Receive Date: 20121012
  Receipt Date: 20121012
  Transmission Date: 20130627
  Serious: No
  Sender: FDA-Public Use
  Company Number: US-GLAXOSMITHKLINE-A0988327A

PATIENT
  Age: 80 Year
  Sex: Male

DRUGS (7)
  1. JALYN [Suspect]
     Indication: PROSTATIC DISORDER
     Dosage: 1CAP Per day
     Route: 048
     Dates: start: 20120802
  2. COREG [Concomitant]
  3. SIMVASTATIN [Concomitant]
  4. ALLOPURINOL [Concomitant]
  5. ASPIRIN [Concomitant]
  6. HECTOROL [Concomitant]
  7. VITAMINS [Concomitant]

REACTIONS (2)
  - Dizziness [Recovered/Resolved]
  - Blood pressure decreased [Recovered/Resolved]
